FAERS Safety Report 19076208 (Version 1)
Quarter: 2021Q1

REPORT INFORMATION
  Report Type: Spontaneous
  Country: GB (occurrence: GB)
  Receive Date: 20210331
  Receipt Date: 20210331
  Transmission Date: 20210420
  Serious: Yes (Other)
  Sender: FDA-Public Use
  Company Number: GB-SA-2021SA103281

PATIENT
  Age: 39 Year
  Sex: Female

DRUGS (11)
  1. FLUOROURACIL. [Suspect]
     Active Substance: FLUOROURACIL
     Indication: COLON CANCER
     Dosage: 254MG IRINOTECAN, 350MG FOLINIC ACID, 76MG OXALIPLATIN AND 3720MG FLUOROURACIL
     Route: 042
     Dates: start: 20200120
  2. ATROPINE. [Concomitant]
     Active Substance: ATROPINE
  3. ONDANSETRON [Concomitant]
     Active Substance: ONDANSETRON
  4. DEXAMETHASONE. [Concomitant]
     Active Substance: DEXAMETHASONE
  5. LORAZEPAM. [Concomitant]
     Active Substance: LORAZEPAM
  6. APREPITANT. [Concomitant]
     Active Substance: APREPITANT
  7. LIPEGFILGRASTIM [Concomitant]
     Active Substance: LIPEGFILGRASTIM
  8. BEVACIZUMAB. [Suspect]
     Active Substance: BEVACIZUMAB
     Indication: COLON CANCER
     Dosage: 252.5 MG
     Route: 042
     Dates: start: 20200120
  9. FOLINIC ACID [Suspect]
     Active Substance: LEUCOVORIN
     Indication: COLON CANCER
     Dosage: 254MG IRINOTECAN, 350MG FOLINIC ACID, 76MG OXALIPLATIN AND 3720MG FLUOROURACIL
     Route: 042
     Dates: start: 20200120
  10. OXALIPLATIN. [Suspect]
     Active Substance: OXALIPLATIN
     Indication: COLON CANCER
     Dosage: 254MG IRINOTECAN, 350MG FOLINIC ACID, 76MG OXALIPLATIN AND 3720MG FLUOROURACIL
     Route: 042
     Dates: start: 20200120
  11. CHLORPHENAMINE [Concomitant]
     Active Substance: CHLORPHENIRAMINE MALEATE

REACTIONS (4)
  - Neuropathy peripheral [Not Recovered/Not Resolved]
  - Gastrointestinal motility disorder [Not Recovered/Not Resolved]
  - Oral pain [Not Recovered/Not Resolved]
  - Gastrointestinal pain [Not Recovered/Not Resolved]

NARRATIVE: CASE EVENT DATE: 202103
